FAERS Safety Report 6733180-3 (Version None)
Quarter: 2010Q2

REPORT INFORMATION
  Report Type: 
  Country: None (occurrence: None)
  Receive Date: 20100520
  Receipt Date: 20100510
  Transmission Date: 20101027
  Serious: Yes (Hospitalization)
  Sender: FDA-Public Use
  Company Number: 2007BI016586

PATIENT
  Age: 63 Year
  Sex: Female
  Weight: 49 kg

DRUGS (3)
  1. AVONEX [Suspect]
     Indication: MULTIPLE SCLEROSIS
     Route: 030
     Dates: start: 19981001, end: 20030101
  2. AVONEX [Suspect]
     Route: 030
     Dates: start: 20030101, end: 20091103
  3. CARAFATE [Concomitant]
     Indication: ULCER

REACTIONS (5)
  - ARTHRALGIA [None]
  - BACK PAIN [None]
  - FALL [None]
  - MUSCULAR WEAKNESS [None]
  - SPINAL COLUMN INJURY [None]
